FAERS Safety Report 9507216 (Version 1)
Quarter: 2013Q3

REPORT INFORMATION
  Report Type: Spontaneous
  Country: BR (occurrence: BR)
  Receive Date: 20130909
  Receipt Date: 20130909
  Transmission Date: 20140515
  Serious: Yes (Other)
  Sender: FDA-Public Use
  Company Number: PHHY2013BR097764

PATIENT
  Age: 10 Year
  Sex: Male

DRUGS (4)
  1. RITALINA [Suspect]
     Indication: PSYCHOMOTOR HYPERACTIVITY
     Dosage: 2 DF, DAILY
     Route: 048
     Dates: start: 2012
  2. RITALINA [Suspect]
     Dosage: 10 MG, UNK
     Dates: start: 201305, end: 201308
  3. RITALIN LA [Suspect]
     Indication: PSYCHOMOTOR HYPERACTIVITY
     Dosage: 1 DF, DAILY
     Route: 048
     Dates: start: 2013
  4. RITALIN LA [Suspect]
     Dosage: 1 DF, DAILY
     Route: 048
     Dates: start: 201308

REACTIONS (3)
  - Asperger^s disorder [Unknown]
  - Drug dependence [Unknown]
  - Drug intolerance [Unknown]
